FAERS Safety Report 7090209-3 (Version None)
Quarter: 2010Q4

REPORT INFORMATION
  Report Type: 
  Country: None (occurrence: None)
  Receive Date: 20101109
  Receipt Date: 20101028
  Transmission Date: 20110411
  Serious: Yes (Hospitalization, Other)
  Sender: FDA-Public Use
  Company Number: US-CELGENEUS-163-21880-10092830

PATIENT
  Sex: Male
  Weight: 93.524 kg

DRUGS (5)
  1. REVLIMID [Suspect]
     Route: 048
     Dates: start: 20100824, end: 20100928
  2. PROTONIX [Concomitant]
     Route: 065
  3. DOXEPIN HCL [Concomitant]
     Route: 065
  4. BACTRIM DS [Concomitant]
     Route: 065
  5. ACYCLOVIR [Concomitant]
     Route: 065

REACTIONS (3)
  - CONVULSION [None]
  - DYSARTHRIA [None]
  - MYCOSIS FUNGOIDES [None]
